FAERS Safety Report 4520202-3 (Version None)
Quarter: 2004Q4

REPORT INFORMATION
  Report Type: 
  Country: None (occurrence: None)
  Receive Date: 20041025
  Receipt Date: 20040614
  Transmission Date: 20050328
  Serious: Yes (Hospitalization)
  Sender: FDA-Public Use
  Company Number: 2004-BP-04669BP

PATIENT
  Age: 69 Year
  Sex: Female

DRUGS (6)
  1. COMBIVENT [Suspect]
     Indication: CHRONIC OBSTRUCTIVE AIRWAYS DISEASE
     Dosage: 18 MCG/ 103 MCG BID PRN), IH
     Route: 055
     Dates: start: 19990101
  2. ADVAIR DISKUS 100/50 [Suspect]
     Indication: MYALGIA
     Dosage: (250/50)
  3. ALLEGRA [Concomitant]
  4. ZANTAC [Concomitant]
  5. SEREVENT [Suspect]
     Indication: MYALGIA
  6. ZITHROMAX [Suspect]
     Indication: WHEEZING
     Dosage: (2 DOSES)
     Dates: start: 20040330

REACTIONS (6)
  - ALOPECIA [None]
  - CONSTIPATION [None]
  - DRY MOUTH [None]
  - INFLUENZA LIKE ILLNESS [None]
  - MYALGIA [None]
  - WHEEZING [None]
